FAERS Safety Report 14273695 (Version 2)
Quarter: 2018Q1

REPORT INFORMATION
  Report Type: Report from Study
  Country: JP (occurrence: JP)
  Receive Date: 20171212
  Receipt Date: 20180215
  Transmission Date: 20180508
  Serious: Yes (Other)
  Sender: FDA-Public Use
  Company Number: JP-BEH-2017085845

PATIENT
  Sex: Male
  Weight: 63 kg

DRUGS (3)
  1. MEIACT [Concomitant]
     Active Substance: CEFDITOREN PIVOXIL
     Dosage: UNK
     Route: 048
     Dates: start: 20140703, end: 20140710
  2. HIZENTRA [Suspect]
     Active Substance: HUMAN IMMUNOGLOBULIN G
     Indication: BRUTON^S AGAMMAGLOBULINAEMIA
     Dosage: 30 ML, QW
     Route: 065
     Dates: start: 20140501, end: 20141023
  3. KLARICID                           /00984601/ [Concomitant]
     Active Substance: CLARITHROMYCIN
     Indication: PROPHYLAXIS
     Route: 048

REACTIONS (1)
  - Acute sinusitis [Recovered/Resolved]

NARRATIVE: CASE EVENT DATE: 20140703
